FAERS Safety Report 4551118-4 (Version None)
Quarter: 2005Q1

REPORT INFORMATION
  Report Type: 
  Country: None (occurrence: None)
  Receive Date: 20050111
  Receipt Date: 20050104
  Transmission Date: 20050727
  Serious: Yes (Other)
  Sender: FDA-Public Use
  Company Number: S05-USA-00020-01

PATIENT
  Age: 25 Year
  Sex: Female

DRUGS (5)
  1. LEXAPRO [Suspect]
     Indication: PANIC ATTACK
     Dosage: 10 MG QD PO
     Route: 048
     Dates: start: 20040701
  2. ADVAIR DISKUS 100/50 [Concomitant]
  3. ALLERX [Concomitant]
  4. NEXIUM [Concomitant]
  5. BIRTH CONTROL PILLS (NOS) [Concomitant]

REACTIONS (2)
  - ELECTROENCEPHALOGRAM ABNORMAL [None]
  - GRAND MAL CONVULSION [None]
